FAERS Safety Report 25021827 (Version 4)
Quarter: 2025Q4

REPORT INFORMATION
  Report Type: Spontaneous
  Country: JP (occurrence: JP)
  Receive Date: 20250228
  Receipt Date: 20251002
  Transmission Date: 20260118
  Serious: Yes (Hospitalization, Other)
  Sender: ROCHE
  Company Number: JP-CHUGAI-2025004128

PATIENT
  Age: 56 Year
  Sex: Male
  Weight: 70 kg

DRUGS (4)
  1. ENSPRYNG [Suspect]
     Active Substance: SATRALIZUMAB-MWGE
     Indication: Neuromyelitis optica spectrum disorder
     Dosage: 120 MILLIGRAM, ONCE/4WEEKS
     Route: 058
     Dates: start: 20241111, end: 20250106
  2. PREDONINE [Concomitant]
     Active Substance: PREDNISOLONE
     Indication: Neuromyelitis optica spectrum disorder
     Dosage: PERORAL AGENT
     Route: 048
     Dates: start: 20220902
  3. PREDONINE [Concomitant]
     Active Substance: PREDNISOLONE
     Dosage: PERORAL AGENT
     Route: 048
     Dates: start: 20241111
  4. PREDONINE [Concomitant]
     Active Substance: PREDNISOLONE
     Dosage: PERORAL AGENT
     Route: 048
     Dates: start: 202502

REACTIONS (2)
  - Psoriasis [Recovering/Resolving]
  - Cellulitis [Recovered/Resolved]

NARRATIVE: CASE EVENT DATE: 20250203
